FAERS Safety Report 15705167 (Version 2)
Quarter: 2019Q1

REPORT INFORMATION
  Report Type: Spontaneous
  Country: BR (occurrence: BR)
  Receive Date: 20181210
  Receipt Date: 20190107
  Transmission Date: 20190417
  Serious: Yes (Life-Threatening, Hospitalization, Other)
  Sender: FDA-Public Use
  Company Number: BR-PFIZER INC-2018499158

PATIENT
  Age: 90 Year
  Sex: Male

DRUGS (8)
  1. CARDURAN XL [Suspect]
     Active Substance: DOXAZOSIN MESYLATE
     Indication: MICTURITION DISORDER
     Dosage: 4 MG, 1X/DAY (AT NIGHT)
     Dates: start: 2004
  2. VITAMIN B12 [Concomitant]
     Active Substance: CYANOCOBALAMIN
  3. CENTRUM A TO ZINC [Concomitant]
     Dosage: UNK
  4. CARDURAN XL [Suspect]
     Active Substance: DOXAZOSIN MESYLATE
     Indication: PROSTATISM
  5. FUROSEMIDE. [Concomitant]
     Active Substance: FUROSEMIDE
     Dosage: UNK
  6. VITAMIN D [Concomitant]
     Active Substance: CHOLECALCIFEROL
     Dosage: UNK
  7. CITALOPRAM [Concomitant]
     Active Substance: CITALOPRAM HYDROBROMIDE
     Dosage: UNK
  8. OMEPRAZOLE. [Concomitant]
     Active Substance: OMEPRAZOLE
     Dosage: UNK

REACTIONS (5)
  - Product residue present [Recovered/Resolved]
  - Drug ineffective [Recovered/Resolved]
  - Cardiac failure [Unknown]
  - Renal failure [Unknown]
  - Intentional product misuse [Recovered/Resolved]

NARRATIVE: CASE EVENT DATE: 2017
